FAERS Safety Report 6846357-3 (Version None)
Quarter: 2010Q3

REPORT INFORMATION
  Report Type: 
  Country: None (occurrence: None)
  Receive Date: 20100715
  Receipt Date: 20071024
  Transmission Date: 20110219
  Serious: Yes (Other)
  Sender: FDA-Public Use
  Company Number: US-PFIZER INC-2007078033

PATIENT
  Sex: Female
  Weight: 73.6 kg

DRUGS (5)
  1. CHANTIX [Suspect]
     Indication: SMOKING CESSATION THERAPY
     Route: 048
     Dates: start: 20070901, end: 20071005
  2. CHANTIX [Suspect]
     Indication: TOBACCO ABUSE
  3. ANTIHYPERTENSIVES [Concomitant]
  4. DILANTIN [Concomitant]
  5. HYZAAR [Concomitant]

REACTIONS (5)
  - ABDOMINAL PAIN UPPER [None]
  - ATAXIA [None]
  - BALANCE DISORDER [None]
  - MALAISE [None]
  - VOMITING [None]
